FAERS Safety Report 6824558-8 (Version None)
Quarter: 2010Q3

REPORT INFORMATION
  Report Type: 
  Country: None (occurrence: None)
  Receive Date: 20100708
  Receipt Date: 20061205
  Transmission Date: 20110219
  Serious: Yes (Other)
  Sender: FDA-Public Use
  Company Number: US-PFIZER INC-2006138351

PATIENT
  Sex: Male
  Weight: 67.59 kg

DRUGS (8)
  1. CHANTIX [Suspect]
     Indication: EX-TOBACCO USER
     Route: 048
     Dates: start: 20061018
  2. CHLORPHENIRAMINE MALEATE [Concomitant]
     Route: 048
  3. CODEINE SYRUP [Concomitant]
     Indication: COUGH
     Route: 048
  4. IPRATROPIUM [Concomitant]
     Route: 048
     Dates: start: 20061003
  5. XOPENEX [Concomitant]
     Route: 048
     Dates: start: 20061003
  6. COMBIVENT [Concomitant]
     Route: 048
     Dates: end: 20061003
  7. FORMOTEROL [Concomitant]
     Route: 048
  8. MOMETASONE FUROATE [Concomitant]
     Route: 048

REACTIONS (3)
  - FEELING JITTERY [None]
  - NAUSEA [None]
  - WEIGHT INCREASED [None]
